FAERS Safety Report 20913567 (Version 3)
Quarter: 2022Q3

REPORT INFORMATION
  Report Type: Report from Study
  Country: US (occurrence: US)
  Receive Date: 20220604
  Receipt Date: 20220830
  Transmission Date: 20221027
  Serious: Yes (Hospitalization, Other)
  Sender: FDA-Public Use
  Company Number: US-ABBVIE-22K-163-4419932-00

PATIENT
  Age: 64 Year
  Sex: Female

DRUGS (1)
  1. RINVOQ [Suspect]
     Active Substance: UPADACITINIB
     Indication: Rheumatoid arthritis
     Dosage: START DATE: ABOUT FOUR OR FIVE YEARS AGO
     Route: 048
     Dates: end: 20220810

REACTIONS (7)
  - Knee arthroplasty [Recovering/Resolving]
  - Bursitis [Recovering/Resolving]
  - Osteoarthritis [Recovered/Resolved]
  - Arthralgia [Recovered/Resolved]
  - Device loosening [Unknown]
  - Tibia fracture [Unknown]
  - Weight bearing difficulty [Unknown]

NARRATIVE: CASE EVENT DATE: 20200801
